FAERS Safety Report 4435476-7 (Version None)
Quarter: 2004Q3

REPORT INFORMATION
  Report Type: 
  Country: None (occurrence: None)
  Receive Date: 20040726
  Receipt Date: 20040429
  Transmission Date: 20050211
  Serious: No
  Sender: FDA-Public Use
  Company Number: USA040466317

PATIENT
  Age: 59 Year
  Sex: Female

DRUGS (2)
  1. FORTEO [Suspect]
     Indication: FRACTURE
     Dates: start: 20040401
  2. FORTEO [Suspect]
     Indication: PROPHYLAXIS
     Dates: start: 20040401

REACTIONS (3)
  - MUSCLE CRAMP [None]
  - MUSCULAR WEAKNESS [None]
  - PAIN IN EXTREMITY [None]
